FAERS Safety Report 7358234-2 (Version None)
Quarter: 2011Q1

REPORT INFORMATION
  Report Type: 
  Country: None (occurrence: None)
  Receive Date: 20110317
  Receipt Date: 20110310
  Transmission Date: 20110831
  Serious: Yes (Hospitalization)
  Sender: FDA-Public Use
  Company Number: US-ROCHE-762962

PATIENT
  Sex: Male
  Weight: 37.4 kg

DRUGS (11)
  1. BEVACIZUMAB [Suspect]
     Indication: NON-SMALL CELL LUNG CANCER
     Dosage: MOST RECENT DOSE: 14 FEBRUERY 2011
     Route: 042
     Dates: start: 20110103
  2. PERCOCET [Concomitant]
     Dosage: DOSE: 10/375 MG
     Dates: start: 20101201
  3. NIFEDIPINE [Concomitant]
     Indication: HYPERTENSION
     Dates: start: 19950101
  4. HYDRALAZINE [Concomitant]
     Indication: HYPERTENSION
     Dates: start: 20080101
  5. DILANTIN [Concomitant]
     Dosage: FREQ: EVERY 4-6 HRS
     Dates: start: 20110101
  6. PEMETREXED [Suspect]
     Indication: NON-SMALL CELL LUNG CANCER
     Dosage: MOST RECENT DOSE: 3 JANUARY 2011 DOSE: 500 MG/M2
     Route: 042
     Dates: start: 20110103
  7. CARBOPLATIN [Suspect]
     Indication: NON-SMALL CELL LUNG CANCER
     Dosage: MOST RECENT DOSE: 3 JANUARY 2011  DOSE: ANIGIS
     Route: 042
     Dates: start: 20110103
  8. ATENOLOL [Concomitant]
     Indication: HYPERTENSION
     Dates: start: 20060101
  9. SIMVASTATIN [Concomitant]
     Indication: HYPERCHOLESTEROLAEMIA
     Dates: start: 20020101
  10. HYDROCHLOROTHIAZIDE [Concomitant]
     Indication: HYPERTENSION
     Dates: start: 20090101
  11. LISINOPRIL [Concomitant]
     Indication: HYPERTENSION
     Dates: start: 19800101

REACTIONS (2)
  - CONVULSION [None]
  - HYPOTENSION [None]
